FAERS Safety Report 5515353-0 (Version None)
Quarter: 2007Q4

REPORT INFORMATION
  Report Type: 
  Country: None (occurrence: None)
  Receive Date: 20071109
  Receipt Date: 20071102
  Transmission Date: 20080405
  Serious: Yes (Other)
  Sender: FDA-Public Use
  Company Number: 2007BI020204

PATIENT
  Age: 68 Year
  Sex: Female

DRUGS (2)
  1. AVONEX [Suspect]
     Indication: MULTIPLE SCLEROSIS
     Dosage: 30 UG;QW;IM
     Route: 030
     Dates: start: 20020201, end: 20030801
  2. AVONEX [Suspect]
     Indication: MULTIPLE SCLEROSIS
     Dosage: 30 UG;QW;IM
     Route: 030
     Dates: start: 20030801

REACTIONS (1)
  - BASAL CELL CARCINOMA [None]
